FAERS Safety Report 8077556-3 (Version None)
Quarter: 2012Q1

REPORT INFORMATION
  Report Type: 
  Country: None (occurrence: None)
  Receive Date: 20120123
  Receipt Date: 20120109
  Transmission Date: 20120608
  Serious: Yes (Other)
  Sender: FDA-Public Use
  Company Number: 2012MA000507

PATIENT
  Age: 60 Year
  Sex: Female

DRUGS (2)
  1. CARBOPLATIN [Suspect]
     Indication: LUNG ADENOCARCINOMA
  2. PACLITAXEL [Suspect]
     Indication: LUNG ADENOCARCINOMA
     Dosage: 17 5MG/M**2;IV
     Route: 042

REACTIONS (5)
  - ATAXIA [None]
  - INAPPROPRIATE ANTIDIURETIC HORMONE SECRETION [None]
  - DISORIENTATION [None]
  - DYSPHAGIA [None]
  - RESTLESSNESS [None]
